FAERS Safety Report 8581046-9 (Version None)
Quarter: 2012Q3

REPORT INFORMATION
  Report Type: 
  Country: None (occurrence: None)
  Receive Date: 20120809
  Receipt Date: 20120727
  Transmission Date: 20120928
  Serious: Yes (Other)
  Sender: FDA-Public Use
  Company Number: GB-RANBAXY-2012R1-58729

PATIENT
  Age: 36 Year
  Sex: Female

DRUGS (6)
  1. MIRTAZAPINE [Concomitant]
     Indication: DEPRESSED MOOD
     Route: 048
  2. HYOSCINE HYDROBROMIDE [Suspect]
     Indication: ADVERSE DRUG REACTION
     Dosage: 600UG, DAILY
     Route: 048
  3. VENLAFAXINE [Suspect]
     Indication: DEPRESSED MOOD
     Dosage: 150MG, DAILY
     Route: 048
  4. CLOZARIL [Suspect]
     Indication: SCHIZOPHRENIA
     Dosage: UNK
     Route: 048
     Dates: start: 20111118
  5. RISPERIDONE [Suspect]
     Indication: SCHIZOPHRENIA
     Dosage: 2MG, DAILY
     Route: 048
  6. CLOZARIL [Suspect]
     Dosage: 450MG, DAILY
     Route: 048

REACTIONS (3)
  - TACHYCARDIA [None]
  - THERAPY RESPONDER [None]
  - ANXIETY [None]
